FAERS Safety Report 16220527 (Version 4)
Quarter: 2019Q4

REPORT INFORMATION
  Report Type: Spontaneous
  Country: KR (occurrence: KR)
  Receive Date: 20190421
  Receipt Date: 20191128
  Transmission Date: 20200122
  Serious: Yes (Death, Life-Threatening, Other)
  Sender: FDA-Public Use
  Company Number: KR-AMGEN-KORSP2019060662

PATIENT

DRUGS (5)
  1. CYTARABINE. [Concomitant]
     Active Substance: CYTARABINE
     Indication: NERVOUS SYSTEM DISORDER PROPHYLAXIS
     Dosage: 40 MILLIGRAM (6 TIMES IN TOTAL)
     Route: 037
  2. METHOTREXATE. [Concomitant]
     Active Substance: METHOTREXATE
     Indication: NERVOUS SYSTEM DISORDER PROPHYLAXIS
     Dosage: 12 MILLIGRAM (6 TIMES IN TOTAL)
     Route: 037
  3. BLINCYTO [Suspect]
     Active Substance: BLINATUMOMAB
     Dosage: 28 MICROGRAM, QD
     Route: 065
  4. BLINCYTO [Suspect]
     Active Substance: BLINATUMOMAB
     Indication: B PRECURSOR TYPE ACUTE LEUKAEMIA
     Dosage: 9 MICROGRAM, QD (FOR THE FIRST 7 DAYS)
     Route: 065
  5. HYDROCORTISONE. [Concomitant]
     Active Substance: HYDROCORTISONE
     Indication: NERVOUS SYSTEM DISORDER PROPHYLAXIS
     Dosage: 50 MILLIGRAM (6 TIMES IN TOTAL)
     Route: 037

REACTIONS (17)
  - Dizziness [Unknown]
  - Neutropenia [Unknown]
  - Febrile neutropenia [Unknown]
  - Death [Fatal]
  - Acute graft versus host disease [Fatal]
  - Thrombocytopenia [Unknown]
  - Anaemia [Unknown]
  - Therapeutic product effect incomplete [Unknown]
  - Organ failure [Fatal]
  - Leukaemic infiltration extramedullary [Unknown]
  - Ataxia [Unknown]
  - Somnolence [Unknown]
  - Cerebrovascular accident [Unknown]
  - Infection [Unknown]
  - Confusional state [Unknown]
  - Tremor [Unknown]
  - Acute lymphocytic leukaemia recurrent [Fatal]
